FAERS Safety Report 4580022-0 (Version None)
Quarter: 2005Q1

REPORT INFORMATION
  Report Type: 
  Country: None (occurrence: None)
  Receive Date: 20050214
  Receipt Date: 20050209
  Transmission Date: 20050727
  Serious: Yes (Life-Threatening)
  Sender: FDA-Public Use
  Company Number: US-MERCK-0502USA01009

PATIENT
  Age: 84 Year
  Sex: Female

DRUGS (2)
  1. FOSAMAX [Suspect]
     Indication: OSTEOPOROSIS
     Route: 048
     Dates: start: 20030101, end: 20050108
  2. SYNTHROID [Concomitant]
     Route: 065

REACTIONS (2)
  - CHEST PAIN [None]
  - DYSPNOEA [None]
